FAERS Safety Report 6585846-6 (Version None)
Quarter: 2010Q1

REPORT INFORMATION
  Report Type: 
  Country: None (occurrence: None)
  Receive Date: 20100217
  Receipt Date: 20100204
  Transmission Date: 20100710
  Serious: Yes (Other)
  Sender: FDA-Public Use
  Company Number: PHHY2009JP08931

PATIENT
  Sex: Female

DRUGS (2)
  1. ZOMETA [Suspect]
     Indication: BREAST CANCER
     Dosage: 10 MG DAILY
     Route: 042
     Dates: start: 20060728, end: 20090205
  2. BISPHONAL [Suspect]
     Indication: BREAST CANCER
     Dosage: 4 MG DAILY
     Route: 042
     Dates: start: 20050801, end: 20060601

REACTIONS (4)
  - BONE DISORDER [None]
  - DENTAL NECROSIS [None]
  - OSTEOMYELITIS [None]
  - OSTEONECROSIS [None]
